FAERS Safety Report 13295521 (Version 4)
Quarter: 2020Q2

REPORT INFORMATION
  Report Type: Report from Study
  Country: TW (occurrence: TW)
  Receive Date: 20170303
  Receipt Date: 20200403
  Transmission Date: 20200713
  Serious: Yes (Other)
  Sender: FDA-Public Use
  Company Number: TW-EMD SERONO-8145156

PATIENT
  Age: 7 Year
  Sex: Male
  Weight: 33 kg

DRUGS (6)
  1. INSULIN [Concomitant]
     Active Substance: INSULIN NOS
     Indication: TYPE 1 DIABETES MELLITUS
     Dosage: UNKNOWN DOSAGE
  2. SAIZEN [Suspect]
     Active Substance: SOMATROPIN
     Dosage: 0.001 MG/KG PER DAY
     Route: 058
     Dates: start: 20170215, end: 20200303
  3. INSULIN [Concomitant]
     Active Substance: INSULIN NOS
  4. INSULIN [Concomitant]
     Active Substance: INSULIN NOS
     Dosage: DOSE REDUCED
  5. METFORMIN [Concomitant]
     Active Substance: METFORMIN HYDROCHLORIDE
     Indication: TYPE 1 DIABETES MELLITUS
  6. SAIZEN [Suspect]
     Active Substance: SOMATROPIN
     Indication: GROWTH HORMONE DEFICIENCY
     Dosage: 0.035 MILLIGRAM/KILOGRAM
     Route: 058

REACTIONS (4)
  - Blood glucose increased [Unknown]
  - Glycosylated haemoglobin increased [Unknown]
  - Blood glucose fluctuation [Recovering/Resolving]
  - Diabetes mellitus [Recovering/Resolving]

NARRATIVE: CASE EVENT DATE: 20170221
